FAERS Safety Report 8060420-3 (Version None)
Quarter: 2012Q1

REPORT INFORMATION
  Report Type: 
  Country: None (occurrence: None)
  Receive Date: 20120120
  Receipt Date: 20120117
  Transmission Date: 20120608
  Serious: Yes (Death)
  Sender: FDA-Public Use
  Company Number: US-GLAXOSMITHKLINE-A0961798A

PATIENT
  Age: 91 Year
  Sex: Male

DRUGS (5)
  1. LIPITOR [Concomitant]
  2. LOVAZA [Suspect]
     Indication: BLOOD CHOLESTEROL
     Dosage: 3CAP PER DAY
     Route: 048
  3. SINUS MEDICATION [Concomitant]
  4. BLOOD PRESSURE MEDICATION [Concomitant]
  5. LASIX [Concomitant]

REACTIONS (1)
  - CEREBRAL HAEMORRHAGE [None]
